FAERS Safety Report 24417660 (Version 1)
Quarter: 2024Q4

REPORT INFORMATION
  Report Type: Spontaneous
  Country: NL (occurrence: NL)
  Receive Date: 20241009
  Receipt Date: 20241009
  Transmission Date: 20250115
  Serious: Yes (Life-Threatening, Hospitalization)
  Sender: FRESENIUS KABI
  Company Number: None

PATIENT
  Age: 55 Year
  Sex: Male
  Weight: 115 kg

DRUGS (8)
  1. PROPOFOL [Suspect]
     Active Substance: PROPOFOL
     Indication: General anaesthesia
     Dosage: EMULSION FOR INJECTION, 20 MG/ML (MILLIGRAM PER MILLILITER)
  2. CEFAZOLIN [Suspect]
     Active Substance: CEFAZOLIN
     Indication: Antibiotic prophylaxis
     Dosage: 1 MALIG 1000MG
  3. DEXAMETHASONE TABLET  4MG / Brand name not specified [Concomitant]
     Indication: Product used for unknown indication
     Dosage: TABLET, 4 MG (MILLIGRAM)
  4. ALBUTEROL [Concomitant]
     Active Substance: ALBUTEROL
     Indication: Product used for unknown indication
     Dosage: AEROSOL, 100 ?G/DOSE (MICROGRAM PER DOSE)
  5. FENTANYL INJVLST 0,05MG/ML / Brand name not specified [Concomitant]
     Indication: Product used for unknown indication
     Dosage: INJECTION FLUID, 0,05 MG/ML (MILLIGRAM PER MILLILITER)
  6. ONDANSETRON TABLET 4MG / Brand name not specified [Concomitant]
     Indication: Product used for unknown indication
     Dosage: TABLET, 4 MG (MILLIGRAM)
  7. BECLOMETASON/FORMOTEROL INHALATIEPOEDER 100/6UG/DO / Brand name not sp [Concomitant]
     Indication: Product used for unknown indication
     Dosage: INHALATION POWDER, 100/6 ?G/DOSE (MICROGRAM PER DOSE)
  8. METRONIDAZOLE INFVLST 5MG/ML / Brand name not specified [Concomitant]
     Indication: Product used for unknown indication
     Dosage: INFUSION FLUID, 5 MG/ML (MILLIGRAM PER MILLILITER)

REACTIONS (2)
  - Hepatic failure [Not Recovered/Not Resolved]
  - Drug-induced liver injury [Not Recovered/Not Resolved]
